FAERS Safety Report 13761970 (Version 1)
Quarter: 2017Q3

REPORT INFORMATION
  Report Type: Spontaneous
  Country: US (occurrence: US)
  Receive Date: 20170718
  Receipt Date: 20170718
  Transmission Date: 20171127
  Serious: No
  Sender: FDA-Public Use
  Company Number: US-WEST-WARD PHARMACEUTICALS CORP.-US-H14001-16-02288

PATIENT
  Age: 4 Year
  Sex: Female
  Weight: 16.12 kg

DRUGS (1)
  1. AMOXICILLIN. [Suspect]
     Active Substance: AMOXICILLIN
     Indication: STREPTOCOCCAL INFECTION
     Route: 048
     Dates: start: 20161018

REACTIONS (2)
  - Flushing [Not Recovered/Not Resolved]
  - Erythema [Not Recovered/Not Resolved]

NARRATIVE: CASE EVENT DATE: 20161019
